FAERS Safety Report 17930205 (Version 1)
Quarter: 2020Q2

REPORT INFORMATION
  Report Type: Spontaneous
  Country: US (occurrence: US)
  Receive Date: 20200623
  Receipt Date: 20200623
  Transmission Date: 20200714
  Serious: No
  Sender: FDA-Public Use
  Company Number: US-DSJP-DSU-2020-118074

PATIENT

DRUGS (1)
  1. ENHERTU [Suspect]
     Active Substance: FAM-TRASTUZUMAB DERUXTECAN-NXKI
     Indication: BREAST CANCER
     Dosage: 500 MG, DAY 1 OF A 21 DAY CYCLE
     Route: 042
     Dates: start: 20200609

REACTIONS (4)
  - Vomiting [Unknown]
  - Nausea [Unknown]
  - Pigmentation disorder [Unknown]
  - Bedridden [Unknown]
